FAERS Safety Report 13590363 (Version 1)
Quarter: 2017Q2

REPORT INFORMATION
  Report Type: Spontaneous
  Country: US (occurrence: US)
  Receive Date: 20170530
  Receipt Date: 20170530
  Transmission Date: 20170830
  Serious: Yes (Other)
  Sender: FDA-Public Use
  Company Number: US-SUNOVION-2017SUN002280

PATIENT
  Age: 47 Year
  Sex: Female

DRUGS (3)
  1. LATUDA [Suspect]
     Active Substance: LURASIDONE HYDROCHLORIDE
     Indication: BIPOLAR I DISORDER
     Dosage: 20 MG, QD
     Route: 048
     Dates: start: 201602, end: 201603
  2. LATUDA [Suspect]
     Active Substance: LURASIDONE HYDROCHLORIDE
     Indication: PANIC ATTACK
     Dosage: 40 MG, QD
     Route: 048
     Dates: start: 201603, end: 20160321
  3. LATUDA [Suspect]
     Active Substance: LURASIDONE HYDROCHLORIDE
     Dosage: 60 MG, QD
     Route: 048
     Dates: start: 20160322

REACTIONS (3)
  - Suicidal ideation [Recovered/Resolved]
  - Off label use [Unknown]
  - Anxiety [Not Recovered/Not Resolved]
